APPROVED DRUG PRODUCT: MANNITOL 20% IN PLASTIC CONTAINER
Active Ingredient: MANNITOL
Strength: 20GM/100ML
Dosage Form/Route: INJECTABLE;INJECTION
Application: N019603 | Product #004 | TE Code: AP
Applicant: OTSUKA ICU MEDICAL LLC
Approved: Jan 8, 1990 | RLD: No | RS: No | Type: RX